FAERS Safety Report 4486805-X (Version None)
Quarter: 2004Q4

REPORT INFORMATION
  Report Type: 
  Country: None (occurrence: None)
  Receive Date: 20041027
  Receipt Date: 20041025
  Transmission Date: 20050328
  Serious: Yes (Other)
  Sender: FDA-Public Use
  Company Number: PHNR2004AU01543

PATIENT
  Age: 49 Year
  Sex: Male
  Weight: 88 kg

DRUGS (3)
  1. VOLTAREN [Suspect]
     Dosage: 150 MG, QD
     Dates: start: 20040610, end: 20040617
  2. TRAMADOL HCL [Suspect]
     Dosage: 150 MG, QD
     Dates: start: 20040610, end: 20040617
  3. ABBOCILLIN-V [Concomitant]

REACTIONS (2)
  - RASH [None]
  - URINARY RETENTION [None]
